FAERS Safety Report 10365902 (Version 1)
Quarter: 2014Q3

REPORT INFORMATION
  Report Type: Spontaneous
  Country: US (occurrence: US)
  Receive Date: 20140806
  Receipt Date: 20140806
  Transmission Date: 20150326
  Serious: No
  Sender: FDA-Public Use
  Company Number: US-ASTRAZENECA-2014SE54582

PATIENT
  Age: 70 Year
  Sex: Female
  Weight: 79.4 kg

DRUGS (2)
  1. LOSARTAN POTASSIUM. [Concomitant]
     Active Substance: LOSARTAN POTASSIUM
     Indication: HYPERTENSION
     Route: 048
     Dates: start: 2012
  2. SYMBICORT [Suspect]
     Active Substance: BUDESONIDE\FORMOTEROL FUMARATE DIHYDRATE
     Indication: ASTHMA
     Dosage: 160/4.5, 1 PUFF, TWO TIMES A DAY
     Route: 055
     Dates: start: 20140611

REACTIONS (6)
  - Stomatitis [Recovered/Resolved]
  - Oral mucosal blistering [Recovered/Resolved]
  - Headache [Not Recovered/Not Resolved]
  - Off label use [Unknown]
  - Cough [Not Recovered/Not Resolved]
  - Drug dose omission [Unknown]

NARRATIVE: CASE EVENT DATE: 201406
